FAERS Safety Report 7268131-9 (Version None)
Quarter: 2011Q1

REPORT INFORMATION
  Report Type: 
  Country: None (occurrence: None)
  Receive Date: 20110201
  Receipt Date: 20110128
  Transmission Date: 20110831
  Serious: No
  Sender: FDA-Public Use
  Company Number: US-PFIZER INC-2011020912

PATIENT
  Sex: Male

DRUGS (2)
  1. LORTAB [Interacting]
     Indication: ARTHRITIS
     Dosage: 10 MG, UNK
     Dates: start: 20030101
  2. PRISTIQ [Suspect]
     Dosage: 50 MG, UNK
     Dates: start: 20110101

REACTIONS (2)
  - HANGOVER [None]
  - DRUG INTERACTION [None]
